FAERS Safety Report 25007684 (Version 2)
Quarter: 2025Q1

REPORT INFORMATION
  Report Type: Spontaneous
  Country: US (occurrence: US)
  Receive Date: 20250225
  Receipt Date: 20250326
  Transmission Date: 20250409
  Serious: No
  Sender: BRISTOL-MYERS SQUIBB COMPANY
  Company Number: US-BRISTOL-MYERS SQUIBB COMPANY-2025-028151

PATIENT
  Age: 81 Year
  Sex: Male

DRUGS (3)
  1. ORENCIA [Suspect]
     Active Substance: ABATACEPT
     Indication: Rheumatoid arthritis
     Dosage: STRENGTH: 250 MG/VL
     Route: 042
     Dates: start: 202502
  2. ORENCIA [Suspect]
     Active Substance: ABATACEPT
     Indication: Interstitial lung disease
     Dosage: STRENGTH: 250 MG/VL
     Route: 042
     Dates: start: 202502
  3. TRAMADOL [Concomitant]
     Active Substance: TRAMADOL
     Indication: Product used for unknown indication

REACTIONS (7)
  - Abdominal discomfort [Unknown]
  - Faeces soft [Unknown]
  - Nausea [Unknown]
  - Diarrhoea [Unknown]
  - Seasonal allergy [Unknown]
  - Dyspepsia [Unknown]
  - Cough [Unknown]
